FAERS Safety Report 7812003-5 (Version None)
Quarter: 2011Q4

REPORT INFORMATION
  Report Type: 
  Country: None (occurrence: None)
  Receive Date: 20111011
  Receipt Date: 20110630
  Transmission Date: 20120403
  Serious: No
  Sender: FDA-Public Use
  Company Number: DL2011-0524

PATIENT
  Age: 22 Year
  Sex: Female

DRUGS (3)
  1. MIFEPRISTONE (MIFEPREX) [Suspect]
     Indication: ABORTION INDUCED
     Dosage: 200 MG, ORAL
     Route: 048
     Dates: start: 20110319
  2. DOXYCYCLINE [Concomitant]
  3. MISOPROSTOL [Suspect]
     Dosage: 800 MCG, BUCCAL
     Route: 002
     Dates: start: 20110320

REACTIONS (4)
  - VAGINAL ODOUR [None]
  - ASTHENIA [None]
  - DIZZINESS [None]
  - ENDOMETRITIS [None]
